FAERS Safety Report 17134039 (Version 1)
Quarter: 2019Q4

REPORT INFORMATION
  Report Type: Report from Study
  Country: IT (occurrence: IT)
  Receive Date: 20191210
  Receipt Date: 20191210
  Transmission Date: 20200122
  Serious: Yes (Hospitalization)
  Sender: FDA-Public Use
  Company Number: IT-MYLANLABS-2019M1119679

PATIENT
  Age: 63 Year
  Sex: Male
  Weight: 72 kg

DRUGS (10)
  1. FIRDAPSE [Suspect]
     Active Substance: AMIFAMPRIDINE
     Dosage: 20 MILLIGRAM, TID (60 MILLIGRAM QD)
     Route: 048
     Dates: start: 201302
  2. TRIATEC                            /00885601/ [Concomitant]
     Active Substance: RAMIPRIL
     Indication: HYPERTENSION
     Dosage: 5 MILLIGRAM
  3. PREDNISONE. [Suspect]
     Active Substance: PREDNISONE
     Indication: MYASTHENIC SYNDROME
     Dosage: 12.5 MILLIGRAM, QD
     Route: 065
     Dates: start: 20131017, end: 201312
  4. PREDNISONE. [Suspect]
     Active Substance: PREDNISONE
     Dosage: 25 MILLIGRAM, QD
     Route: 065
     Dates: start: 201312
  5. FIRDAPSE [Suspect]
     Active Substance: AMIFAMPRIDINE
     Dosage: 10 MILLIGRAM, TID (30 MILLIGRAM, QD)
     Route: 048
     Dates: start: 20110712, end: 201302
  6. AZATHIOPRINE. [Suspect]
     Active Substance: AZATHIOPRINE
     Indication: MYASTHENIC SYNDROME
     Dosage: 200 MILLIGRAM, QD
     Route: 065
     Dates: start: 201507
  7. AZATHIOPRINE. [Suspect]
     Active Substance: AZATHIOPRINE
     Dosage: 50 MILLIGRAM, TID (150 MILLIGRAM, QD)
     Route: 065
     Dates: start: 20161221
  8. FIRDAPSE [Suspect]
     Active Substance: AMIFAMPRIDINE
     Indication: MYASTHENIC SYNDROME
     Dosage: 5 MILLIGRAM, TID (15 MILLIGRAM QD)
     Route: 048
     Dates: start: 20110712, end: 20111121
  9. AZATHIOPRINE. [Suspect]
     Active Substance: AZATHIOPRINE
     Dosage: 100 MILLIGRAM, QD
     Route: 065
     Dates: start: 201507
  10. TAREG [Concomitant]
     Active Substance: VALSARTAN
     Indication: HYPERTENSION
     Dosage: 5 MILLIGRAM

REACTIONS (1)
  - Joint dislocation [Recovered/Resolved]

NARRATIVE: CASE EVENT DATE: 201803
